FAERS Safety Report 5087210-8 (Version None)
Quarter: 2006Q3

REPORT INFORMATION
  Report Type: 
  Country: None (occurrence: None)
  Receive Date: 20060821
  Receipt Date: 20060810
  Transmission Date: 20061208
  Serious: Yes (Death)
  Sender: FDA-Public Use
  Company Number: 228054

PATIENT
  Age: 58 Year
  Sex: Male
  Weight: 57 kg

DRUGS (4)
  1. MABTHERA               (RITUXIMAB) [Suspect]
     Indication: B-CELL LYMPHOMA
     Dosage: 633 MG, INTRAVENOUS
     Route: 042
     Dates: start: 20060613
  2. FLUDARABINE PHOSPHATE [Concomitant]
  3. CYCLOPHOSPHAMIDE [Concomitant]
  4. MITOXANTRONE [Concomitant]

REACTIONS (5)
  - CARDIO-RESPIRATORY ARREST [None]
  - ELECTROMECHANICAL DISSOCIATION [None]
  - NEUTROPENIA [None]
  - PNEUMONIA [None]
  - SEPTIC SHOCK [None]
